FAERS Safety Report 8094144-3 (Version None)
Quarter: 2012Q1

REPORT INFORMATION
  Report Type: 
  Country: None (occurrence: None)
  Receive Date: 20120130
  Receipt Date: 20120130
  Transmission Date: 20120608
  Serious: Yes (Other)
  Sender: FDA-Public Use
  Company Number: None

PATIENT
  Age: 17 Year
  Sex: Male
  Weight: 101.15 kg

DRUGS (6)
  1. CARBAMAZEPINE [Suspect]
     Indication: AFFECTIVE DISORDER
     Dosage: 200.0 MG
     Route: 048
     Dates: start: 20110901, end: 20111007
  2. CARBAMAZEPINE [Concomitant]
     Route: 048
  3. PHENOBARBITAL TAB [Concomitant]
     Route: 048
  4. TRAZODONE HCL [Concomitant]
     Route: 048
  5. ARIPIPRAZOLE [Concomitant]
     Route: 048
  6. MELATONIN [Concomitant]
     Route: 048

REACTIONS (8)
  - PSYCHOTIC DISORDER [None]
  - URINE KETONE BODY PRESENT [None]
  - NEUTROPENIA [None]
  - PARKINSONISM [None]
  - THROMBOCYTOPENIA [None]
  - PROTEIN URINE PRESENT [None]
  - BIPOLAR DISORDER [None]
  - LEUKOPENIA [None]
